FAERS Safety Report 10754374 (Version 1)
Quarter: 2015Q1

REPORT INFORMATION
  Report Type: Report from Study
  Country: US (occurrence: US)
  Receive Date: 20150202
  Receipt Date: 20150202
  Transmission Date: 20150721
  Serious: Yes (Other)
  Sender: FDA-Public Use
  Company Number: US-BAYER-2014-188975

PATIENT
  Sex: Female

DRUGS (1)
  1. MIRENA [Suspect]
     Active Substance: LEVONORGESTREL
     Indication: CONTRACEPTION
     Dosage: 20 MCG/24HR, CONT
     Route: 015
     Dates: start: 201404, end: 201501

REACTIONS (17)
  - Mood swings [None]
  - Insomnia [None]
  - Feeling abnormal [None]
  - Postpartum depression [None]
  - Weight increased [None]
  - Abdominal distension [None]
  - Irritability [None]
  - Burnout syndrome [None]
  - Amnesia [None]
  - Depression suicidal [None]
  - Emotional distress [None]
  - Anger [None]
  - Fatigue [None]
  - Crying [None]
  - Feelings of worthlessness [None]
  - Arthralgia [Not Recovered/Not Resolved]
  - Daydreaming [None]

NARRATIVE: CASE EVENT DATE: 2014
